FAERS Safety Report 21560413 (Version 1)
Quarter: 2022Q4

REPORT INFORMATION
  Report Type: Spontaneous
  Country: FR (occurrence: FR)
  Receive Date: 20221107
  Receipt Date: 20221107
  Transmission Date: 20230113
  Serious: Yes (Other)
  Sender: FDA-Public Use
  Company Number: FR-ALIMERA SCIENCES INC.-FR-A16013-22-000271

PATIENT
  Age: 61 Year
  Sex: Female

DRUGS (1)
  1. FLUOCINOLONE ACETONIDE [Suspect]
     Active Substance: FLUOCINOLONE ACETONIDE
     Indication: Myopia
     Dosage: 0.25 MICROGRAM, QD -UNKNOWN EYE
     Route: 031

REACTIONS (6)
  - Cystoid macular oedema [Unknown]
  - Visual impairment [Unknown]
  - Device dislocation [Unknown]
  - Intraocular pressure increased [Unknown]
  - Off label use [Unknown]
  - Medical device removal [Recovered/Resolved]
